FAERS Safety Report 19084577 (Version 1)
Quarter: 2021Q2

REPORT INFORMATION
  Report Type: Spontaneous
  Country: US (occurrence: US)
  Receive Date: 20210401
  Receipt Date: 20210401
  Transmission Date: 20210717
  Serious: No
  Sender: FDA-Public Use
  Company Number: US-IBSA PHARMA-2020-IBS-00796

PATIENT
  Age: 58 Year

DRUGS (2)
  1. METHOTREXATE SODIUM. [Interacting]
     Active Substance: METHOTREXATE SODIUM
  2. DICLOFENAC EPOLAMINE [Suspect]
     Active Substance: DICLOFENAC EPOLAMINE

REACTIONS (2)
  - No adverse event [Unknown]
  - Drug interaction [Unknown]
